FAERS Safety Report 20181120 (Version 1)
Quarter: 2021Q4

REPORT INFORMATION
  Report Type: Spontaneous
  Country: US (occurrence: US)
  Receive Date: 20211214
  Receipt Date: 20211214
  Transmission Date: 20220304
  Serious: No
  Sender: FDA-Public Use
  Company Number: US-STRIDES ARCOLAB LIMITED-2021SP028590

PATIENT
  Age: 13 Year
  Sex: Female

DRUGS (4)
  1. PREDNISOLONE [Suspect]
     Active Substance: PREDNISOLONE
     Indication: Alopecia totalis
     Dosage: UNK, PULSED
     Route: 048
  2. SQUARIC ACID [Suspect]
     Active Substance: SQUARIC ACID
     Indication: Alopecia totalis
     Dosage: UNK
     Route: 061
  3. ANTHRALIN [Suspect]
     Active Substance: ANTHRALIN
     Indication: Alopecia totalis
     Dosage: UNK
     Route: 061
  4. METHOTREXATE [Suspect]
     Active Substance: METHOTREXATE
     Indication: Alopecia totalis
     Dosage: UNK
     Route: 048

REACTIONS (1)
  - Drug ineffective [Unknown]
